FAERS Safety Report 7979424-1 (Version None)
Quarter: 2011Q4

REPORT INFORMATION
  Report Type: 
  Country: None (occurrence: None)
  Receive Date: 20111214
  Receipt Date: 20111205
  Transmission Date: 20120403
  Serious: Yes (Hospitalization)
  Sender: FDA-Public Use
  Company Number: DE-PURDUE-DEU-2011-0008149

PATIENT
  Age: 71 Year
  Sex: Male

DRUGS (8)
  1. FLUANXOL                           /00109702/ [Concomitant]
     Dosage: 100 MG, UNK
     Route: 030
     Dates: start: 20110330
  2. THEOPHYLLINE [Suspect]
     Indication: CHRONIC OBSTRUCTIVE PULMONARY DISEASE
     Dosage: 500 MG, UNK
     Route: 048
  3. FLUANXOL                           /00109702/ [Concomitant]
     Dosage: 60 MG, UNK
     Route: 030
     Dates: start: 19910101, end: 20110329
  4. RAMIPRIL [Concomitant]
     Dosage: 2.5 MG, UNK
     Route: 048
  5. CITALOPRAM HYDROBROMIDE [Suspect]
     Indication: SCHIZOAFFECTIVE DISORDER
     Dosage: 10 MG, UNK
     Dates: start: 20110317, end: 20110330
  6. ZOLPIDEM [Concomitant]
     Dosage: 10 MG, UNK
     Route: 048
     Dates: start: 20111030
  7. SYMBICORT [Concomitant]
     Dosage: 2 PUFF, TID
     Route: 048
  8. BERODUAL [Concomitant]
     Dosage: 1 PUFF, SEE TEXT
     Route: 048

REACTIONS (2)
  - HALLUCINATION [None]
  - DELUSION [None]
